FAERS Safety Report 8350458-0 (Version None)
Quarter: 2012Q2

REPORT INFORMATION
  Report Type: 
  Country: None (occurrence: None)
  Receive Date: 20120510
  Receipt Date: 20120425
  Transmission Date: 20120825
  Serious: Yes (Death)
  Sender: FDA-Public Use
  Company Number: US-BAXTER-2012BAX003958

PATIENT
  Sex: Female

DRUGS (3)
  1. DIANEAL [Suspect]
     Indication: PERITONEAL DIALYSIS
     Route: 033
     Dates: start: 20080609, end: 20120420
  2. DIANEAL [Suspect]
     Route: 033
     Dates: start: 20080609, end: 20120420
  3. DIANEAL [Suspect]
     Route: 033
     Dates: start: 20080609, end: 20120420

REACTIONS (3)
  - CEREBROVASCULAR ACCIDENT [None]
  - RENAL FAILURE [None]
  - BRAIN NEOPLASM [None]
